FAERS Safety Report 5010965-5 (Version None)
Quarter: 2006Q2

REPORT INFORMATION
  Report Type: 
  Country: None (occurrence: None)
  Receive Date: 20060523
  Receipt Date: 20060512
  Transmission Date: 20061013
  Serious: Yes (Other)
  Sender: FDA-Public Use
  Company Number: HQWYE456623JAN06

PATIENT
  Age: 54 Year
  Sex: Female
  Weight: 63.56 kg

DRUGS (2)
  1. PROTONIX [Suspect]
     Indication: GASTROOESOPHAGEAL REFLUX DISEASE
     Dosage: 40 MG 1X PER 1 DAY, ORAL
     Route: 048
     Dates: start: 20041001, end: 20060121
  2. ACTONEL [Concomitant]

REACTIONS (2)
  - AUTOIMMUNE HEPATITIS [None]
  - PROTHROMBIN TIME PROLONGED [None]
